FAERS Safety Report 7228320-6 (Version None)
Quarter: 2011Q1

REPORT INFORMATION
  Report Type: 
  Country: None (occurrence: None)
  Receive Date: 20110114
  Receipt Date: 20110110
  Transmission Date: 20110831
  Serious: Yes (Hospitalization)
  Sender: FDA-Public Use
  Company Number: US-US-EMD SERONO, INC.-7035538

PATIENT
  Sex: Female

DRUGS (2)
  1. REBIF [Suspect]
     Indication: MULTIPLE SCLEROSIS
     Dates: start: 20030105, end: 20091201
  2. CELL CEPT [Concomitant]
     Indication: IMMUNE ENHANCEMENT THERAPY

REACTIONS (5)
  - STAPHYLOCOCCAL INFECTION [None]
  - HERPES ZOSTER [None]
  - HERPES VIRUS INFECTION [None]
  - URINARY TRACT INFECTION [None]
  - RESPIRATORY TRACT INFECTION [None]
